FAERS Safety Report 5343552-X (Version None)
Quarter: 2007Q2

REPORT INFORMATION
  Report Type: 
  Country: None (occurrence: None)
  Receive Date: 20070416
  Receipt Date: 20070125
  Transmission Date: 20071010
  Serious: No
  Sender: FDA-Public Use
  Company Number: 2007SP000296

PATIENT
  Age: 70 Year
  Sex: Female
  Weight: 76.2043 kg

DRUGS (10)
  1. LUNESTA [Suspect]
     Indication: INSOMNIA
     Dosage: 3 MG; HS; ORAL
     Route: 048
     Dates: start: 20070124
  2. TENORMIN [Concomitant]
  3. SYNTHROID [Concomitant]
  4. DYAZIDE [Concomitant]
  5. VERAPAMIL [Concomitant]
  6. WARFARIN SODIUM [Concomitant]
  7. SIMVASTATIN [Concomitant]
  8. ASPIRIN [Concomitant]
  9. ACTIVELLA [Concomitant]
  10. NEXIUM [Concomitant]

REACTIONS (1)
  - DYSGEUSIA [None]
